FAERS Safety Report 5707951-6 (Version None)
Quarter: 2008Q2

REPORT INFORMATION
  Report Type: 
  Country: None (occurrence: None)
  Receive Date: 20080417
  Receipt Date: 20080410
  Transmission Date: 20081010
  Serious: Yes (Other)
  Sender: FDA-Public Use
  Company Number: PHRM2008FR01239

PATIENT
  Age: 66 Year
  Sex: Female

DRUGS (6)
  1. ZOMETA [Suspect]
     Indication: METASTASES TO BONE
     Dosage: 4 MG, ONCE/SINGLE
     Route: 042
     Dates: start: 20070801, end: 20070801
  2. LYTOS [Suspect]
     Indication: METASTASES TO BONE
     Route: 048
     Dates: start: 20070801
  3. HYDROCORTISONE [Concomitant]
  4. LOXEN [Concomitant]
  5. SECTRAL [Concomitant]
  6. SUTENT [Concomitant]

REACTIONS (2)
  - OSTEONECROSIS [None]
  - PRIMARY SEQUESTRUM [None]
